FAERS Safety Report 10883610 (Version 5)
Quarter: 2015Q2

REPORT INFORMATION
  Report Type: Spontaneous
  Country: US (occurrence: US)
  Receive Date: 20150303
  Receipt Date: 20150609
  Transmission Date: 20150821
  Serious: No
  Sender: FDA-Public Use
  Company Number: US-009507513-1502USA009185

PATIENT
  Age: 26 Year
  Sex: Female
  Weight: 56.69 kg

DRUGS (1)
  1. NEXPLANON [Suspect]
     Active Substance: ETONOGESTREL
     Indication: CONTRACEPTION
     Dosage: UNK
     Route: 059
     Dates: start: 20150210

REACTIONS (8)
  - Implant site hypoaesthesia [Recovered/Resolved]
  - Implant site paraesthesia [Recovered/Resolved]
  - Product quality issue [Unknown]
  - Hypoaesthesia [Recovered/Resolved]
  - Device dislocation [Recovered/Resolved]
  - Mental retardation [Not Recovered/Not Resolved]
  - Device difficult to use [Recovered/Resolved]
  - Paraesthesia [Recovered/Resolved]

NARRATIVE: CASE EVENT DATE: 201502
